FAERS Safety Report 11368755 (Version 1)
Quarter: 2015Q3

REPORT INFORMATION
  Report Type: Spontaneous
  Country: US (occurrence: US)
  Receive Date: 20150812
  Receipt Date: 20150812
  Transmission Date: 20151125
  Serious: No
  Sender: FDA-Public Use
  Company Number: US-009507513-1507USA010383

PATIENT
  Age: 38 Year
  Sex: Female

DRUGS (2)
  1. NUVARING [Suspect]
     Active Substance: ETHINYL ESTRADIOL\ETONOGESTREL
     Indication: MENORRHAGIA
     Dosage: ONE RING FOR A FULL MONTH AND THEN CHANGES RINGS, EXCEPT FOR ABOUT 2 CONSECUTIVE DAYS PER YEAR
     Route: 067
  2. NUVARING [Suspect]
     Active Substance: ETHINYL ESTRADIOL\ETONOGESTREL
     Indication: HORMONE LEVEL ABNORMAL
     Dosage: ONE RING FOR A FULL MONTH AND THEN CHANGES RINGS, EXCEPT FOR ABOUT 2 CONSECUTIVE DAYS PER YEAR
     Route: 067

REACTIONS (11)
  - Menometrorrhagia [Not Recovered/Not Resolved]
  - Migraine [Not Recovered/Not Resolved]
  - Incorrect product storage [Unknown]
  - Inappropriate schedule of drug administration [Unknown]
  - Product quality issue [Unknown]
  - Vaginal haemorrhage [Unknown]
  - Malaise [Not Recovered/Not Resolved]
  - Therapeutic response unexpected [Unknown]
  - Lethargy [Not Recovered/Not Resolved]
  - Incorrect drug administration duration [Unknown]
  - Drug administration error [Unknown]

NARRATIVE: CASE EVENT DATE: 20150710
